FAERS Safety Report 4296911-0 (Version None)
Quarter: 2004Q1

REPORT INFORMATION
  Report Type: 
  Country: None (occurrence: None)
  Receive Date: 20040213
  Receipt Date: 20040203
  Transmission Date: 20041129
  Serious: Yes (Life-Threatening, Hospitalization)
  Sender: FDA-Public Use
  Company Number: 2004005977

PATIENT
  Age: 73 Year
  Sex: Female

DRUGS (3)
  1. MINIPRESS [Suspect]
     Indication: HYPERTENSION
     Dosage: 1 MG, ORAL
     Route: 048
  2. EPINASTINE HYDROCHLORIDE (EPINASTINE HYDROCHLORIDE) [Concomitant]
  3. MECOBALAMIN (MECOBALAMIN) [Concomitant]

REACTIONS (1)
  - GASTRIC ULCER [None]
